FAERS Safety Report 19201475 (Version 1)
Quarter: 2021Q2

REPORT INFORMATION
  Report Type: Spontaneous
  Country: CN (occurrence: CN)
  Receive Date: 20210430
  Receipt Date: 20210430
  Transmission Date: 20210717
  Serious: Yes (Other)
  Sender: FDA-Public Use
  Company Number: CN-PFIZER INC-2021426280

PATIENT
  Age: 36 Year
  Sex: Female

DRUGS (3)
  1. MIFEPRISTONE [Concomitant]
     Active Substance: MIFEPRISTONE
     Indication: ABORTION INDUCED
     Dosage: 150 MG
     Route: 048
  2. MISOPROSTOL. [Suspect]
     Active Substance: MISOPROSTOL
     Dosage: 200UG OF MISOPROSTOL WAS PLACED IN THE VAGINA 6H BEFORE ADMISSION
     Route: 067
  3. MISOPROSTOL. [Suspect]
     Active Substance: MISOPROSTOL
     Indication: ABORTION INDUCED
     Dosage: 200 UG ORALLY 12H AND 10H BEFORE ADMISSION RESPECTIVELY
     Route: 048

REACTIONS (3)
  - Product use issue [Unknown]
  - Uterine rupture [Unknown]
  - Off label use [Unknown]
